FAERS Safety Report 7244310-1 (Version None)
Quarter: 2011Q1

REPORT INFORMATION
  Report Type: 
  Country: None (occurrence: None)
  Receive Date: 20110125
  Receipt Date: 20110112
  Transmission Date: 20110831
  Serious: Yes (Hospitalization)
  Sender: FDA-Public Use
  Company Number: PHHY2011FR03092

PATIENT
  Sex: Female

DRUGS (5)
  1. PACLITAXEL [Suspect]
     Indication: BREAST CANCER
     Dosage: 105 MG MILLIGRAM(S) TOTAL
     Route: 041
     Dates: start: 20101207, end: 20101207
  2. POLARAMINE [Concomitant]
  3. CARBOPLATIN [Suspect]
     Indication: BREAST CANCER
     Dosage: 120 MG MILLIGRAM(S) TOTAL
     Route: 041
     Dates: start: 20101207, end: 20101207
  4. METHYLPREDNISOLONE [Concomitant]
     Dosage: UNK
  5. ZOPHREN [Concomitant]
     Dosage: UNK

REACTIONS (2)
  - BACK PAIN [None]
  - HYPERSENSITIVITY [None]
